FAERS Safety Report 4967527-5 (Version None)
Quarter: 2006Q2

REPORT INFORMATION
  Report Type: 
  Country: None (occurrence: None)
  Receive Date: 20060410
  Receipt Date: 20060405
  Transmission Date: 20061013
  Serious: Yes (Other)
  Sender: FDA-Public Use
  Company Number: US-GLAXOSMITHKLINE-A0600579A

PATIENT
  Age: 43 Year
  Sex: Male

DRUGS (4)
  1. COMPAZINE [Suspect]
     Indication: VOMITING
     Route: 042
     Dates: start: 20060324
  2. CARDIZEM [Concomitant]
  3. COZAAR [Concomitant]
  4. DILANTIN [Concomitant]

REACTIONS (3)
  - CONVULSION [None]
  - FEELING ABNORMAL [None]
  - TREMOR [None]
